FAERS Safety Report 8868764 (Version 3)
Quarter: 2013Q3

REPORT INFORMATION
  Report Type: Spontaneous
  Country: US (occurrence: US)
  Receive Date: 20121024
  Receipt Date: 20130718
  Transmission Date: 20140515
  Serious: Yes (Hospitalization, Other)
  Sender: FDA-Public Use
  Company Number: US-US-EMD SERONO, INC.-7168746

PATIENT
  Age: 45 Year
  Sex: Female

DRUGS (1)
  1. REBIF [Suspect]
     Indication: MULTIPLE SCLEROSIS
     Route: 058
     Dates: start: 20100713, end: 201306

REACTIONS (10)
  - Amputation [Recovering/Resolving]
  - Wound [Recovering/Resolving]
  - Blood glucose decreased [Unknown]
  - Femur fracture [Recovering/Resolving]
  - Skin ulcer [Recovering/Resolving]
  - Dyskinesia [Unknown]
  - Dysarthria [Not Recovered/Not Resolved]
  - Gait disturbance [Not Recovered/Not Resolved]
  - Dizziness [Recovered/Resolved]
  - Fatigue [Not Recovered/Not Resolved]
